FAERS Safety Report 12419848 (Version 1)
Quarter: 2016Q2

REPORT INFORMATION
  Report Type: Spontaneous
  Country: US (occurrence: US)
  Receive Date: 20160531
  Receipt Date: 20160531
  Transmission Date: 20160815
  Serious: No
  Sender: FDA-Public Use
  Company Number: US-GLAXOSMITHKLINE-US2016065417

PATIENT
  Age: 70 Year
  Sex: Female

DRUGS (8)
  1. CIPRO [Suspect]
     Active Substance: CIPROFLOXACIN HYDROCHLORIDE
     Indication: PRODUCT USED FOR UNKNOWN INDICATION
     Dosage: UNK, U
  2. CALCIUM + D [Concomitant]
     Active Substance: CALCIUM\VITAMIN D
  3. VITAMIN E [Concomitant]
     Active Substance: .ALPHA.-TOCOPHEROL
  4. MUCINEX [Concomitant]
     Active Substance: GUAIFENESIN
  5. OSTEO BI-FLEX [Concomitant]
     Active Substance: CHONDROITIN SULFATE A\GLUCOSAMINE
  6. BIOTIN [Concomitant]
     Active Substance: BIOTIN
  7. SINGULAIR [Concomitant]
     Active Substance: MONTELUKAST SODIUM
  8. BREO ELLIPTA [Suspect]
     Active Substance: FLUTICASONE FUROATE\VILANTEROL TRIFENATATE
     Indication: COUGH
     Dosage: 200/25 1 PUFF, QD
     Route: 055
     Dates: start: 20160505

REACTIONS (4)
  - Cough [Unknown]
  - Somnolence [Unknown]
  - Off label use [Not Recovered/Not Resolved]
  - Dizziness [Unknown]

NARRATIVE: CASE EVENT DATE: 20160505
